FAERS Safety Report 12983015 (Version 1)
Quarter: 2016Q4

REPORT INFORMATION
  Report Type: Spontaneous
  Country: US (occurrence: US)
  Receive Date: 20161129
  Receipt Date: 20161129
  Transmission Date: 20170207
  Serious: No
  Sender: FDA-Public Use
  Company Number: US-MALLINCKRODT-T201601614

PATIENT
  Sex: Male
  Weight: 91 kg

DRUGS (2)
  1. FENTANYL TRANSDERMAL SYSTEM [Suspect]
     Active Substance: FENTANYL
     Indication: PAIN
     Dosage: 100MCG/HR, ONE PATCH Q48 HOURS
     Route: 062
     Dates: start: 2008
  2. FENTANYL TRANSDERMAL SYSTEM [Suspect]
     Active Substance: FENTANYL
     Indication: INTERVERTEBRAL DISC DEGENERATION

REACTIONS (4)
  - Wrong technique in product usage process [Not Recovered/Not Resolved]
  - Drug effect decreased [Recovered/Resolved]
  - Hyperhidrosis [Not Recovered/Not Resolved]
  - Product adhesion issue [Not Recovered/Not Resolved]

NARRATIVE: CASE EVENT DATE: 2014
